FAERS Safety Report 20642357 (Version 2)
Quarter: 2022Q3

REPORT INFORMATION
  Report Type: Report from Study
  Country: DE (occurrence: DE)
  Receive Date: 20220328
  Receipt Date: 20220805
  Transmission Date: 20221027
  Serious: Yes (Hospitalization)
  Sender: FDA-Public Use
  Company Number: DE-ABBVIE-22P-062-4331217-00

PATIENT
  Age: 53 Year
  Sex: Female

DRUGS (2)
  1. RINVOQ [Suspect]
     Active Substance: UPADACITINIB
     Indication: Rheumatoid arthritis
     Route: 048
     Dates: start: 202006
  2. METHOTREXATE [Concomitant]
     Active Substance: METHOTREXATE
     Indication: Product used for unknown indication
     Dosage: STOPPED BETWEEN 30 SEP 2020 TO 13 JAN 2021

REACTIONS (5)
  - Rib fracture [Recovered/Resolved]
  - Sternal fracture [Recovered/Resolved]
  - Road traffic accident [Recovered/Resolved]
  - Cervical dysplasia [Unknown]
  - Human papilloma virus test positive [Unknown]

NARRATIVE: CASE EVENT DATE: 20210714
